FAERS Safety Report 16654416 (Version 1)
Quarter: 2019Q3

REPORT INFORMATION
  Report Type: Spontaneous
  Country: ES (occurrence: ES)
  Receive Date: 20190731
  Receipt Date: 20190731
  Transmission Date: 20191004
  Serious: Yes (Other)
  Sender: FDA-Public Use
  Company Number: ES-TEVA-2019-ES-1085955

PATIENT
  Age: 78 Year
  Sex: Female
  Weight: 74 kg

DRUGS (1)
  1. ERLOTINIB (2988A) [Suspect]
     Active Substance: ERLOTINIB
     Indication: LUNG ADENOCARCINOMA
     Dosage: 100 MILLIGRAM DAILY;
     Route: 048
     Dates: start: 20190312

REACTIONS (1)
  - Alopecia [Unknown]

NARRATIVE: CASE EVENT DATE: 201905
